FAERS Safety Report 5920264-2 (Version None)
Quarter: 2008Q4

REPORT INFORMATION
  Report Type: 
  Country: None (occurrence: None)
  Receive Date: 20081014
  Receipt Date: 20081007
  Transmission Date: 20090506
  Serious: Yes (Other)
  Sender: FDA-Public Use
  Company Number: MK-6032429

PATIENT
  Age: 38 Year
  Sex: Male

DRUGS (5)
  1. ANAGRELIDE HCL [Suspect]
     Indication: THROMBOCYTHAEMIA
     Dosage: 1000 MG; DAILY;
  2. ASPIRIN [Concomitant]
  3. ALLOPURINOL [Concomitant]
  4. LISINOPRIL [Concomitant]
  5. BISOPROLOL FUMARATE [Concomitant]

REACTIONS (6)
  - ATROPHIE BLANCHE [None]
  - DERMATITIS [None]
  - ERYTHEMA [None]
  - PAIN [None]
  - SKIN NECROSIS [None]
  - SKIN ULCER [None]
